FAERS Safety Report 4606240-0 (Version None)
Quarter: 2005Q1

REPORT INFORMATION
  Report Type: 
  Country: None (occurrence: None)
  Receive Date: 20050311
  Receipt Date: 20050301
  Transmission Date: 20050727
  Serious: Yes (Other)
  Sender: FDA-Public Use
  Company Number: CA-ABBOTT-05P-028-0292852-00

PATIENT
  Sex: Female

DRUGS (22)
  1. HUMIRA [Suspect]
     Indication: RHEUMATOID ARTHRITIS
     Route: 058
  2. PREDNISONE [Concomitant]
     Indication: RHEUMATOID ARTHRITIS
  3. PREDNISONE [Concomitant]
     Indication: SCLERITIS
     Route: 047
  4. HYDROXYCHLOROQUINE PHOSPHATE [Concomitant]
     Indication: RHEUMATOID ARTHRITIS
     Dates: start: 19960101
  5. METHOTREXATE [Concomitant]
     Indication: RHEUMATOID ARTHRITIS
     Dates: start: 19940101
  6. AMITRIPTYLINE HCL [Concomitant]
     Indication: FIBROMYALGIA
  7. OMEPRAZOLE [Concomitant]
     Indication: DUODENAL ULCER
  8. ZOPICLONE [Concomitant]
     Indication: INSOMNIA
  9. LACRI-LUBE [Concomitant]
     Indication: DRY EYE
  10. DICLOFENAC SODIUM [Concomitant]
     Indication: EYE PAIN
  11. FLUOROMETHOLONE [Concomitant]
     Indication: DRUG USE FOR UNKNOWN INDICATION
  12. PROXYMETACAINE HYDROCHLORIDE [Concomitant]
     Indication: SCLERITIS
     Route: 047
  13. ALENDRONATE SODIUM [Concomitant]
     Indication: DRUG USE FOR UNKNOWN INDICATION
  14. CALCIUM WITH VITAMIN D [Concomitant]
     Indication: DRUG USE FOR UNKNOWN INDICATION
  15. MULTI-VITAMINS [Concomitant]
     Indication: DRUG USE FOR UNKNOWN INDICATION
  16. FOLIC ACID [Concomitant]
     Indication: VITAMIN SUPPLEMENTATION
  17. ASCORBIC ACID [Concomitant]
     Indication: DRUG USE FOR UNKNOWN INDICATION
  18. ANTACID TAB [Concomitant]
     Indication: DYSPEPSIA
  19. ANTACID TAB [Concomitant]
  20. PARACETAMOL [Concomitant]
     Indication: HEADACHE
  21. NABUMETONE [Concomitant]
     Indication: DRUG USE FOR UNKNOWN INDICATION
     Dates: start: 19940101
  22. NSAID'S [Concomitant]
     Indication: RHEUMATOID ARTHRITIS

REACTIONS (1)
  - HEPATIC ENZYME INCREASED [None]
